FAERS Safety Report 7807246-0 (Version None)
Quarter: 2011Q4

REPORT INFORMATION
  Report Type: 
  Country: None (occurrence: None)
  Receive Date: 20111011
  Receipt Date: 20111005
  Transmission Date: 20120403
  Serious: Yes (Death, Congenital Anomaly)
  Sender: FDA-Public Use
  Company Number: GB-PFIZER INC-2011238459

PATIENT

DRUGS (3)
  1. PROGRAF [Suspect]
     Indication: LIVER TRANSPLANT
     Dosage: 10 MG, PER DAY
     Route: 064
  2. SERTRALINE HYDROCHLORIDE [Suspect]
     Dosage: 100 MG, PER DAY
     Route: 064
  3. AZATHIOPRINE [Suspect]
     Dosage: UNK
     Route: 064

REACTIONS (2)
  - MATERNAL EXPOSURE DURING PREGNANCY [None]
  - MULTIPLE CARDIAC DEFECTS [None]
